FAERS Safety Report 11789871 (Version 1)
Quarter: 2015Q4

REPORT INFORMATION
  Report Type: Spontaneous
  Country: NO (occurrence: NO)
  Receive Date: 20151201
  Receipt Date: 20151201
  Transmission Date: 20160305
  Serious: Yes (Congenital Anomaly, Other)
  Sender: FDA-Public Use
  Company Number: NO-EAGLE PHARMACEUTICALS, INC.-ELL201511-000264

PATIENT

DRUGS (1)
  1. DICLOFENAC SODIUM AND MISOPROSTOL [Suspect]
     Active Substance: DICLOFENAC SODIUM\MISOPROSTOL

REACTIONS (6)
  - Tricuspid valve incompetence [Unknown]
  - Ductus arteriosus stenosis foetal [Unknown]
  - Dilatation ventricular [Unknown]
  - Pulmonary artery stenosis congenital [Unknown]
  - Ascites [Unknown]
  - Foetal exposure during pregnancy [Unknown]
